FAERS Safety Report 7448313-3 (Version None)
Quarter: 2011Q2

REPORT INFORMATION
  Report Type: 
  Country: None (occurrence: None)
  Receive Date: 20110429
  Receipt Date: 20110420
  Transmission Date: 20111010
  Serious: Yes (Death)
  Sender: FDA-Public Use
  Company Number: JP-ELI_LILLY_AND_COMPANY-JP201104005996

PATIENT

DRUGS (2)
  1. GEMZAR [Suspect]
     Indication: TRANSITIONAL CELL CARCINOMA
     Dosage: DAY 1,8,15
     Route: 042
  2. DOCETAXEL [Concomitant]
     Indication: TRANSITIONAL CELL CARCINOMA
     Dosage: DAY 1

REACTIONS (1)
  - MYOCARDIAL INFARCTION [None]
